FAERS Safety Report 12360134 (Version 2)
Quarter: 2016Q3

REPORT INFORMATION
  Report Type: Report from Study
  Country: DE (occurrence: AR)
  Receive Date: 20160512
  Receipt Date: 20160712
  Transmission Date: 20161109
  Serious: Yes (Death, Life-Threatening, Hospitalization, Other)
  Sender: FDA-Public Use
  Company Number: DE-ACTELION-A-US2016-136121

PATIENT
  Age: 73 Year
  Sex: Male

DRUGS (1)
  1. VENTAVIS [Suspect]
     Active Substance: ILOPROST
     Indication: PULMONARY HYPERTENSION
     Dosage: UNK
     Route: 055
     Dates: start: 2002, end: 20160517

REACTIONS (3)
  - Condition aggravated [Fatal]
  - Cardio-respiratory arrest [Fatal]
  - Coagulation time prolonged [Unknown]

NARRATIVE: CASE EVENT DATE: 20160401
